FAERS Safety Report 20857594 (Version 2)
Quarter: 2022Q2

REPORT INFORMATION
  Report Type: Spontaneous
  Country: CZ (occurrence: CZ)
  Receive Date: 20220521
  Receipt Date: 20220527
  Transmission Date: 20220721
  Serious: Yes (Life-Threatening, Hospitalization)
  Sender: FDA-Public Use
  Company Number: CZ-CELLTRION INC.-2022CZ007001

PATIENT

DRUGS (1)
  1. RITUXIMAB [Suspect]
     Active Substance: RITUXIMAB
     Indication: Coagulation factor VIII level
     Dosage: 375 MG/M2 (GRADUALLY 4 DOSES IN TOTAL IN WEEKLY INTERVALS)

REACTIONS (4)
  - Melaena [Unknown]
  - Haemorrhage [Unknown]
  - Drug ineffective for unapproved indication [Unknown]
  - Off label use [Unknown]
